FAERS Safety Report 4883300-0 (Version None)
Quarter: 2006Q1

REPORT INFORMATION
  Report Type: 
  Country: None (occurrence: None)
  Receive Date: 20060118
  Receipt Date: 20050713
  Transmission Date: 20060701
  Serious: Yes (Other)
  Sender: FDA-Public Use
  Company Number: JL0508

PATIENT
  Age: 58 Year
  Sex: Female
  Weight: 60.5 kg

DRUGS (7)
  1. LOTRONEX [Suspect]
     Dosage: 1TAB PER DAY
     Route: 048
     Dates: start: 20050515, end: 20050603
  2. COLESTID [Concomitant]
     Dosage: 2G TWICE PER DAY
     Route: 048
  3. NEXIUM [Concomitant]
     Dosage: 40MG PER DAY
     Route: 048
  4. VIOKASE [Concomitant]
     Dosage: 4TAB FOUR TIMES PER DAY
     Route: 048
  5. ELAVIL [Concomitant]
     Dosage: 10MG AT NIGHT
     Route: 048
  6. PLAQUENIL [Concomitant]
     Indication: ARTHRALGIA
     Dosage: 200MG TWICE PER DAY
     Route: 048
  7. PAREGORIC [Concomitant]
     Route: 048

REACTIONS (3)
  - ABDOMINAL DISTENSION [None]
  - ABDOMINAL PAIN UPPER [None]
  - RECTAL HAEMORRHAGE [None]
